FAERS Safety Report 5210507-5 (Version None)
Quarter: 2007Q1

REPORT INFORMATION
  Report Type: 
  Country: None (occurrence: None)
  Receive Date: 20070117
  Receipt Date: 20070109
  Transmission Date: 20070707
  Serious: Yes (Other)
  Sender: FDA-Public Use
  Company Number: PHEH2007US00762

PATIENT
  Sex: Male

DRUGS (6)
  1. METOPROLOL TARTRATE [Suspect]
     Indication: HEART RATE INCREASED
     Dosage: 50 MG, BID
  2. LIPITOR [Concomitant]
     Dosage: 80 MG, QD
  3. ALTACE [Concomitant]
     Dosage: 2.5 MG, QD
  4. ASPIRIN [Concomitant]
     Dosage: 325 MG, QD
  5. PLAVIX [Concomitant]
     Dosage: 75 MG, QD
  6. CHANTIX [Concomitant]
     Indication: SMOKING CESSATION THERAPY

REACTIONS (2)
  - HEARING IMPAIRED [None]
  - MYOCARDIAL INFARCTION [None]
